FAERS Safety Report 6123105-6 (Version None)
Quarter: 2009Q1

REPORT INFORMATION
  Report Type: 
  Country: None (occurrence: None)
  Receive Date: 20090318
  Receipt Date: 20090309
  Transmission Date: 20090719
  Serious: Yes (Hospitalization)
  Sender: FDA-Public Use
  Company Number: CH-AMGEN-UK292148

PATIENT
  Age: 73 Year
  Sex: Female

DRUGS (6)
  1. MIMPARA [Suspect]
     Indication: HYPERPARATHYROIDISM SECONDARY
     Route: 048
     Dates: start: 20060701, end: 20080117
  2. NEXIUM [Concomitant]
     Dates: start: 20080101
  3. IMUREK [Concomitant]
  4. ATACAND [Concomitant]
     Dates: start: 20031101
  5. NORVASC [Concomitant]
     Dates: start: 20031101
  6. BISOPROLOL FUMARATE [Concomitant]
     Dates: start: 20031101

REACTIONS (3)
  - GRAND MAL CONVULSION [None]
  - HYPOGLYCAEMIA [None]
  - SOMNOLENCE [None]
